FAERS Safety Report 8540514-6 (Version None)
Quarter: 2012Q3

REPORT INFORMATION
  Report Type: 
  Country: None (occurrence: None)
  Receive Date: 20120726
  Receipt Date: 20110802
  Transmission Date: 20120928
  Serious: No
  Sender: FDA-Public Use
  Company Number: US-ASTRAZENECA-2011SE46364

PATIENT
  Age: 44 Year
  Sex: Female

DRUGS (1)
  1. SEROQUEL [Suspect]
     Dosage: TOTAL DAILY DOSE 100MG
     Route: 048

REACTIONS (2)
  - MALAISE [None]
  - DRUG DOSE OMISSION [None]
